FAERS Safety Report 7249263-8 (Version None)
Quarter: 2011Q1

REPORT INFORMATION
  Report Type: 
  Country: None (occurrence: None)
  Receive Date: 20110128
  Receipt Date: 20101123
  Transmission Date: 20110831
  Serious: Yes (Hospitalization, Other)
  Sender: FDA-Public Use
  Company Number: US-BAYER-201025479NA

PATIENT
  Sex: Female
  Weight: 54.422 kg

DRUGS (5)
  1. YASMIN [Suspect]
     Dosage: UNK
     Dates: start: 20040901, end: 20050301
  2. DILANTIN [Concomitant]
     Indication: CONVULSION
     Dosage: UNK
     Dates: start: 20050101
  3. YASMIN [Suspect]
     Indication: CONTRACEPTION
     Dates: start: 20031201
  4. IBUPROFEN [Concomitant]
     Dosage: UNK
     Dates: start: 20020101, end: 20080101
  5. MARIJUANA [Concomitant]
     Dosage: UNK
     Dates: end: 20050317

REACTIONS (4)
  - DYSARTHRIA [None]
  - CEREBROVASCULAR ACCIDENT [None]
  - MOBILITY DECREASED [None]
  - FACIAL PARESIS [None]
